FAERS Safety Report 4981601-9 (Version None)
Quarter: 2006Q2

REPORT INFORMATION
  Report Type: 
  Country: None (occurrence: None)
  Receive Date: 20060421
  Receipt Date: 20060421
  Transmission Date: 20061013
  Serious: Yes (Life-Threatening)
  Sender: FDA-Public Use
  Company Number: None

PATIENT
  Sex: Male
  Weight: 92.0802 kg

DRUGS (2)
  1. PEGYLATED INTERFERON ALPHA HOFFMAN-LAROACH [Suspect]
     Indication: HEPATITIS C
     Dosage: 150 MCG ONCE PER WEEK SC
     Route: 058
     Dates: start: 20060201, end: 20060401
  2. RIBAVIRIN [Suspect]
     Indication: HEPATITIS C
     Dosage: 600 MG BID PO
     Route: 048
     Dates: start: 20060201, end: 20060401

REACTIONS (3)
  - DYSPNOEA [None]
  - HYPOXIA [None]
  - LUNG INFILTRATION [None]
